FAERS Safety Report 25190551 (Version 1)
Quarter: 2025Q2

REPORT INFORMATION
  Report Type: Spontaneous
  Country: US (occurrence: US)
  Receive Date: 20250411
  Receipt Date: 20250411
  Transmission Date: 20250717
  Serious: Yes (Hospitalization)
  Sender: LEXICON PHARMACEUTICALS
  Company Number: US-LEX-000729

PATIENT
  Age: 92 Year
  Sex: Male
  Weight: 68.49 kg

DRUGS (1)
  1. INPEFA [Suspect]
     Active Substance: SOTAGLIFLOZIN
     Indication: Left ventricular failure
     Route: 048
     Dates: start: 20241115

REACTIONS (1)
  - Retinal artery occlusion [Unknown]

NARRATIVE: CASE EVENT DATE: 20250315
